FAERS Safety Report 5957646-9 (Version None)
Quarter: 2008Q4

REPORT INFORMATION
  Report Type: 
  Country: None (occurrence: None)
  Receive Date: 20081113
  Receipt Date: 20081027
  Transmission Date: 20090506
  Serious: Yes (Other)
  Sender: FDA-Public Use
  Company Number: 2008010630

PATIENT
  Age: 31 Year
  Sex: Female
  Weight: 56 kg

DRUGS (6)
  1. FRAGMIN [Suspect]
     Indication: FACTOR V LEIDEN MUTATION
     Dosage: (5000 I.U., 1 D), SUBCUTANEOUS
     Route: 058
     Dates: start: 20080115, end: 20080306
  2. FRAGMIN [Suspect]
     Indication: HYPERCOAGULATION
     Dosage: (5000 I.U., 1 D), SUBCUTANEOUS
     Route: 058
     Dates: start: 20080115, end: 20080306
  3. FRAGMIN [Suspect]
     Indication: FACTOR V LEIDEN MUTATION
     Dosage: 5000 I.U. (5000 I.U., 1 IN 1 D), SUBCUTANEOUS
     Route: 058
     Dates: start: 20080306, end: 20081027
  4. FRAGMIN [Suspect]
     Indication: HYPERCOAGULATION
     Dosage: 5000 I.U. (5000 I.U., 1 IN 1 D), SUBCUTANEOUS
     Route: 058
     Dates: start: 20080306, end: 20081027
  5. LEVOTHYROXINE SODIUM [Concomitant]
  6. FERROUS SULFATE TAB [Concomitant]

REACTIONS (9)
  - AMNIOCENTESIS ABNORMAL [None]
  - ANAEMIA OF PREGNANCY [None]
  - COMPLICATION OF DELIVERY [None]
  - CYANOSIS [None]
  - DIZZINESS [None]
  - DRUG EXPOSURE DURING PREGNANCY [None]
  - DRUG EXPOSURE VIA BREAST MILK [None]
  - HYPOTENSION [None]
  - POLYHYDRAMNIOS [None]
